FAERS Safety Report 19120579 (Version 1)
Quarter: 2021Q2

REPORT INFORMATION
  Report Type: Spontaneous
  Country: US (occurrence: US)
  Receive Date: 20210410
  Receipt Date: 20210410
  Transmission Date: 20210717
  Serious: Yes (Other)
  Sender: FDA-Public Use
  Company Number: None

PATIENT
  Age: 22 Year
  Sex: Female
  Weight: 112.5 kg

DRUGS (3)
  1. DEXTROAMPHET 10MG TAB TABS GENERIC EQUIVALENT FOR ZENZEDI I [Suspect]
     Active Substance: DEXTROAMPHETAMINE SULFATE
     Indication: ATTENTION DEFICIT HYPERACTIVITY DISORDER
     Dosage: ?          QUANTITY:180 TABLET(S);?
     Route: 048
     Dates: start: 20210407, end: 20210408
  2. SPIRONOLACTONE. [Concomitant]
     Active Substance: SPIRONOLACTONE
  3. EFFEXOR [Concomitant]
     Active Substance: VENLAFAXINE HYDROCHLORIDE

REACTIONS (11)
  - Swelling [None]
  - Drug ineffective [None]
  - Mouth swelling [None]
  - Asthenia [None]
  - Oral pain [None]
  - Headache [None]
  - Fatigue [None]
  - Tongue dry [None]
  - Dry mouth [None]
  - Thinking abnormal [None]
  - Tongue erythema [None]

NARRATIVE: CASE EVENT DATE: 20210407
